FAERS Safety Report 22176770 (Version 2)
Quarter: 2023Q2

REPORT INFORMATION
  Report Type: Report from Study
  Country: US (occurrence: US)
  Receive Date: 20230405
  Receipt Date: 20230419
  Transmission Date: 20230721
  Serious: Yes (Hospitalization, Other)
  Sender: FDA-Public Use
  Company Number: US-PAREXEL-2021-KAM-US003436

PATIENT
  Sex: Male
  Weight: 120.18 kg

DRUGS (31)
  1. GLASSIA [Suspect]
     Active Substance: .ALPHA.1-PROTEINASE INHIBITOR HUMAN
     Indication: Alpha-1 antitrypsin deficiency
     Dosage: 8000 MILLIGRAM, 1/WEEK
     Route: 042
     Dates: start: 20170427
  2. GLASSIA [Suspect]
     Active Substance: .ALPHA.1-PROTEINASE INHIBITOR HUMAN
     Indication: Alpha-1 antitrypsin deficiency
     Dosage: 8000 MILLIGRAM, 1/WEEK
     Route: 042
     Dates: start: 20170427
  3. GLASSIA [Suspect]
     Active Substance: .ALPHA.1-PROTEINASE INHIBITOR HUMAN
     Dosage: 8000 MILLIGRAM/KILOGRAM, 1/WEEK
     Route: 042
     Dates: start: 20170427
  4. GLASSIA [Suspect]
     Active Substance: .ALPHA.1-PROTEINASE INHIBITOR HUMAN
     Dosage: 8000 MILLIGRAM/KILOGRAM, 1/WEEK
     Route: 042
     Dates: start: 20170427
  5. GLASSIA [Suspect]
     Active Substance: .ALPHA.1-PROTEINASE INHIBITOR HUMAN
     Dosage: 8000 MILLIGRAM, 1/WEEK
     Route: 042
     Dates: start: 20180228
  6. GLASSIA [Suspect]
     Active Substance: .ALPHA.1-PROTEINASE INHIBITOR HUMAN
     Dosage: 8000 MILLIGRAM, 1/WEEK
     Route: 042
     Dates: start: 20180228
  7. DIPHENHYDRAMINE [Concomitant]
     Active Substance: DIPHENHYDRAMINE
     Dosage: UNKNOWN
     Route: 065
  8. LIDOCAINE [Concomitant]
     Active Substance: LIDOCAINE
     Dosage: UNKNOWN
     Route: 065
  9. SODIUM CHLORIDE [Concomitant]
     Active Substance: SODIUM CHLORIDE
     Dosage: UNKNOWN
     Route: 065
  10. EPINEPHRINE [Concomitant]
     Active Substance: EPINEPHRINE
     Dosage: UNKNOWN
     Route: 065
  11. MORPHINE [Concomitant]
     Active Substance: MORPHINE
     Dosage: UNKNOWN
     Route: 065
  12. DIAZEPAM [Concomitant]
     Active Substance: DIAZEPAM
     Dosage: UNKNOWN
     Route: 065
  13. SYSTANE (HYPROMELLOSE 2910 (4000 MPA.S)) [Concomitant]
     Active Substance: HYPROMELLOSE 2910 (4000 MPA.S)
     Dosage: UNKNOWN
     Route: 065
  14. SPIRIVA [Concomitant]
     Active Substance: TIOTROPIUM BROMIDE MONOHYDRATE
     Dosage: UNKNOWN
     Route: 065
  15. OXYGEN [Concomitant]
     Active Substance: OXYGEN
     Dosage: UNKNOWN
     Route: 065
  16. DULERA [Concomitant]
     Active Substance: FORMOTEROL FUMARATE DIHYDRATE\MOMETASONE FUROATE
     Dosage: UNKNOWN
     Route: 065
  17. COMBIVENT [Concomitant]
     Active Substance: ALBUTEROL SULFATE\IPRATROPIUM BROMIDE
     Dosage: UNKNOWN
     Route: 065
  18. PROAIR HFA [Concomitant]
     Active Substance: ALBUTEROL SULFATE
     Dosage: UNKNOWN
     Route: 065
  19. Amlodipine + atorvastatin [Concomitant]
     Dosage: UNKNOWN
     Route: 065
  20. OMEPRAZOLE [Concomitant]
     Active Substance: OMEPRAZOLE
     Dosage: UNK
  21. MORPHINE SULFATE [Concomitant]
     Active Substance: MORPHINE SULFATE
     Dosage: UNK
  22. VITAMIN C [Concomitant]
     Active Substance: ASCORBIC ACID
     Dosage: UNK
  23. AER [Concomitant]
     Dosage: UNK
  24. Lmx [Concomitant]
     Dosage: UNK
  25. FOLIC ACID\IRON [Concomitant]
     Active Substance: FOLIC ACID\IRON
     Dosage: UNK
  26. ZINC [Concomitant]
     Active Substance: ZINC
     Dosage: UNK
  27. DIPHENHYDRAMINE HYDROCHLORIDE [Concomitant]
     Active Substance: DIPHENHYDRAMINE HYDROCHLORIDE
     Dosage: UNK
  28. PREDNISONE [Concomitant]
     Active Substance: PREDNISONE
  29. AUGMENTIN [Concomitant]
     Active Substance: AMOXICILLIN\CLAVULANATE POTASSIUM
  30. SPIRIVA RESPIMAT [Concomitant]
     Active Substance: TIOTROPIUM BROMIDE
  31. PROAIR HFA [Concomitant]
     Active Substance: ALBUTEROL SULFATE

REACTIONS (7)
  - Pulmonary thrombosis [Unknown]
  - Infection [Unknown]
  - Influenza like illness [Unknown]
  - Multiple allergies [Unknown]
  - Malaise [Unknown]
  - Device infusion issue [Unknown]
  - Fatigue [Unknown]
